FAERS Safety Report 10620258 (Version 4)
Quarter: 2016Q2

REPORT INFORMATION
  Report Type: Report from Study
  Country: IE (occurrence: IE)
  Receive Date: 20141128
  Receipt Date: 20160502
  Transmission Date: 20160815
  Serious: Yes (Hospitalization, Other)
  Sender: FDA-Public Use
  Company Number: ADR-2014-02255

PATIENT
  Age: 28 Year
  Sex: Female

DRUGS (3)
  1. METHYPREDNISOLONE (NGX) [Suspect]
     Active Substance: METHYLPREDNISOLONE
     Route: 042
  2. BACLOFEN. [Suspect]
     Active Substance: BACLOFEN
     Indication: PAIN
     Dosage: 10 MG
  3. GILENYA [Suspect]
     Active Substance: FINGOLIMOD HYDROCHLORIDE
     Indication: MULTIPLE SCLEROSIS
     Dosage: 0.5 MG, QD
     Route: 048
     Dates: start: 20130919

REACTIONS (14)
  - Central nervous system lesion [Unknown]
  - Viral infection [Unknown]
  - Orthostatic hypotension [Unknown]
  - Loss of consciousness [Unknown]
  - Circulatory collapse [Recovered/Resolved with Sequelae]
  - Hemiplegia [Unknown]
  - Cough [Unknown]
  - Nuclear magnetic resonance imaging brain abnormal [Unknown]
  - Muscular weakness [Unknown]
  - Epistaxis [Recovered/Resolved with Sequelae]
  - Headache [Recovered/Resolved with Sequelae]
  - Productive cough [Unknown]
  - Syncope [Unknown]
  - Malaise [Recovered/Resolved with Sequelae]

NARRATIVE: CASE EVENT DATE: 2014
